FAERS Safety Report 11349612 (Version 1)
Quarter: 2015Q3

REPORT INFORMATION
  Report Type: Spontaneous
  Country: US (occurrence: None)
  Receive Date: 20150805
  Receipt Date: 20150805
  Transmission Date: 20151125
  Serious: Yes (Other)
  Sender: FDA-Public Use
  Company Number: US-002030

PATIENT
  Age: 34 Year
  Sex: Female
  Weight: 68.04 kg

DRUGS (7)
  1. TUMS [Concomitant]
     Active Substance: CALCIUM CARBONATE
  2. POTASSIUM [Concomitant]
     Active Substance: POTASSIUM
  3. LEXAPRO [Concomitant]
     Active Substance: ESCITALOPRAM OXALATE
  4. SLO-MAG (MAGNESIUM CHLORIDE ANHYDROUS) [Concomitant]
     Active Substance: MAGNESIUM CHLORIDE ANHYDROUS
  5. CALCITRIOL. [Concomitant]
     Active Substance: CALCITRIOL
  6. NATPARA (PARATHYROID HORMONE) [Suspect]
     Active Substance: PARATHYROID HORMONE
     Indication: HYPOPARATHYROIDISM
     Dosage: (50 UG QD  SUBCUTANEOUS)
     Route: 058
     Dates: start: 201506
  7. SYNTHROID [Concomitant]
     Active Substance: LEVOTHYROXINE SODIUM

REACTIONS (5)
  - Hyperhidrosis [None]
  - Disorientation [None]
  - Fatigue [None]
  - Blood calcium decreased [None]
  - Pollakiuria [None]
